FAERS Safety Report 6591614-1 (Version None)
Quarter: 2010Q1

REPORT INFORMATION
  Report Type: 
  Country: None (occurrence: None)
  Receive Date: 20100221
  Receipt Date: 20090805
  Transmission Date: 20100710
  Serious: No
  Sender: FDA-Public Use
  Company Number: US-ALLERGAN-0910890US

PATIENT
  Age: 35 Year
  Sex: Female

DRUGS (1)
  1. BOTOX COSMETIC [Suspect]
     Indication: SKIN WRINKLING
     Dosage: 40 UNITS, SINGLE
     Route: 030
     Dates: start: 20090801, end: 20090801

REACTIONS (7)
  - DIZZINESS POSTURAL [None]
  - DRUG INEFFECTIVE [None]
  - DYSPNOEA [None]
  - FACIAL PARESIS [None]
  - HEADACHE [None]
  - INJECTION SITE PRURITUS [None]
  - MALAISE [None]
